FAERS Safety Report 7495356-X (Version None)
Quarter: 2011Q2

REPORT INFORMATION
  Report Type: 
  Country: None (occurrence: None)
  Receive Date: 20110523
  Receipt Date: 20110512
  Transmission Date: 20111010
  Serious: Yes (Hospitalization)
  Sender: FDA-Public Use
  Company Number: 161934

PATIENT
  Age: 41 Year
  Sex: Female

DRUGS (4)
  1. NEURONTIN [Concomitant]
  2. IBUPROFEN [Concomitant]
  3. AVONEX [Suspect]
     Indication: MULTIPLE SCLEROSIS
     Route: 030
     Dates: start: 20020325, end: 20020531
  4. LEVAQUIN [Concomitant]

REACTIONS (6)
  - MULTIPLE SCLEROSIS RELAPSE [None]
  - PNEUMONIA [None]
  - INFLUENZA [None]
  - VIRAL INFECTION [None]
  - DRUG INTOLERANCE [None]
  - PRESYNCOPE [None]
